FAERS Safety Report 13572503 (Version 1)
Quarter: 2017Q2

REPORT INFORMATION
  Report Type: Spontaneous
  Country: FR (occurrence: FR)
  Receive Date: 20170523
  Receipt Date: 20170523
  Transmission Date: 20170830
  Serious: Yes (Hospitalization, Other)
  Sender: FDA-Public Use
  Company Number: FR-GLAXOSMITHKLINE-FR2017GSK074405

PATIENT
  Age: 69 Year
  Sex: Female

DRUGS (4)
  1. INIPOMP [Concomitant]
     Active Substance: PANTOPRAZOLE SODIUM
  2. ZEBINIX [Suspect]
     Active Substance: ESLICARBAZEPINE ACETATE
     Indication: EPILEPSY
     Dosage: 400 MG, QD
     Route: 048
     Dates: start: 20170113, end: 20170209
  3. ZINNAT [Suspect]
     Active Substance: CEFUROXIME AXETIL
     Indication: BRONCHITIS
     Dosage: 250 MG, QD
     Route: 048
     Dates: start: 20170131, end: 20170206
  4. LIPANTHYL [Concomitant]
     Active Substance: FENOFIBRATE

REACTIONS (7)
  - Eosinophilia [Recovered/Resolved]
  - Face oedema [Recovered/Resolved]
  - Rash maculo-papular [Recovered/Resolved]
  - Pruritus generalised [Recovered/Resolved]
  - Lip oedema [Recovered/Resolved]
  - Toxic skin eruption [Recovered/Resolved]
  - Hyperthermia [Recovered/Resolved]

NARRATIVE: CASE EVENT DATE: 20170206
